FAERS Safety Report 7679852-8 (Version None)
Quarter: 2011Q3

REPORT INFORMATION
  Report Type: 
  Country: None (occurrence: None)
  Receive Date: 20110812
  Receipt Date: 20110810
  Transmission Date: 20111222
  Serious: Yes (Hospitalization, Other)
  Sender: FDA-Public Use
  Company Number: US-PFIZER INC-2011184434

PATIENT
  Sex: Female
  Weight: 68 kg

DRUGS (4)
  1. DILANTIN [Suspect]
     Indication: CONVULSION
     Dosage: 100 MG, 2X/DAY
     Route: 048
     Dates: start: 19740101, end: 19950101
  2. PRIMIDONE [Concomitant]
     Dosage: UNK
  3. DILANTIN [Suspect]
     Dosage: 100 MG, 3X/DAY
     Dates: start: 19950101
  4. METHOTREXATE [Concomitant]
     Dosage: UNK

REACTIONS (4)
  - DRUG LEVEL DECREASED [None]
  - CEREBROVASCULAR ACCIDENT [None]
  - MALAISE [None]
  - CONVULSION [None]
